FAERS Safety Report 7465853-1 (Version None)
Quarter: 2011Q2

REPORT INFORMATION
  Report Type: 
  Country: None (occurrence: None)
  Receive Date: 20110509
  Receipt Date: 20100419
  Transmission Date: 20111010
  Serious: No
  Sender: FDA-Public Use
  Company Number: US-ALEXION-A201000444

PATIENT
  Sex: Female

DRUGS (3)
  1. SOLIRIS [Suspect]
     Indication: PAROXYSMAL NOCTURNAL HAEMOGLOBINURIA
     Dosage: 21 DAY DOSING
     Route: 042
  2. SOLIRIS [Suspect]
     Dosage: 900 MG, Q2W
     Route: 042
  3. LEVAQUIN [Suspect]
     Indication: MULTIPLE ALLERGIES
     Dosage: UNK
     Dates: start: 20100301

REACTIONS (5)
  - MULTIPLE ALLERGIES [None]
  - PRODUCTIVE COUGH [None]
  - DYSPNOEA [None]
  - HEPATIC ENZYME INCREASED [None]
  - PLATELET COUNT DECREASED [None]
